FAERS Safety Report 9090166 (Version 1)
Quarter: 2013Q1

REPORT INFORMATION
  Report Type: Report from Study
  Country: US (occurrence: US)
  Receive Date: 20130131
  Receipt Date: 20130131
  Transmission Date: 20140127
  Serious: No
  Sender: FDA-Public Use
  Company Number: US-ABBOTT-12P-163-1022394-00

PATIENT
  Age: 27 Year
  Sex: Female

DRUGS (1)
  1. HUMIRA [Suspect]
     Indication: RHEUMATOID ARTHRITIS
     Dates: start: 20121128

REACTIONS (5)
  - Alopecia [Not Recovered/Not Resolved]
  - Crying [Unknown]
  - Vision blurred [Recovered/Resolved]
  - Eye disorder [Recovered/Resolved]
  - Hypoaesthesia eye [Recovered/Resolved]
